FAERS Safety Report 5333679-0 (Version None)
Quarter: 2007Q2

REPORT INFORMATION
  Report Type: 
  Country: None (occurrence: None)
  Receive Date: 20070524
  Receipt Date: 20070523
  Transmission Date: 20071010
  Serious: Yes (Congenital Anomaly)
  Sender: FDA-Public Use
  Company Number: A0652597A

PATIENT
  Sex: Female

DRUGS (1)
  1. PAXIL [Suspect]
     Indication: DRUG USE FOR UNKNOWN INDICATION

REACTIONS (12)
  - ABNORMAL BEHAVIOUR [None]
  - AGITATION [None]
  - ASPERGER'S DISORDER [None]
  - ASTHENIA [None]
  - AUTISM [None]
  - CARDIAC DISORDER [None]
  - CRYING [None]
  - DEPRESSION [None]
  - DRUG EXPOSURE DURING PREGNANCY [None]
  - LEARNING DISORDER [None]
  - MOVEMENT DISORDER [None]
  - PANIC ATTACK [None]
